FAERS Safety Report 13284380 (Version 3)
Quarter: 2017Q4

REPORT INFORMATION
  Report Type: Spontaneous
  Country: JP (occurrence: JP)
  Receive Date: 20170301
  Receipt Date: 20171227
  Transmission Date: 20180320
  Serious: Yes (Hospitalization, Other)
  Sender: FDA-Public Use
  Company Number: JP-PFIZER INC-2017088275

PATIENT
  Age: 66 Year
  Sex: Male
  Weight: 57.4 kg

DRUGS (4)
  1. METHOTREXATE. [Suspect]
     Active Substance: METHOTREXATE
     Indication: RHEUMATOID ARTHRITIS
     Dosage: 8 MG, WEEKLY
  2. PREDNISOLONE. [Suspect]
     Active Substance: PREDNISOLONE
     Indication: RHEUMATOID ARTHRITIS
     Dosage: 5 MG, DAILY
  3. OXYGEN. [Suspect]
     Active Substance: OXYGEN
     Dosage: 1.0 L/ MIN
  4. LOXOPROFEN [Suspect]
     Active Substance: LOXOPROFEN
     Dosage: UNK

REACTIONS (2)
  - Immunodeficiency [Unknown]
  - Pulmonary mycosis [Not Recovered/Not Resolved]
